FAERS Safety Report 7318976-1 (Version None)
Quarter: 2011Q1

REPORT INFORMATION
  Report Type: 
  Country: None (occurrence: None)
  Receive Date: 20110228
  Receipt Date: 20110216
  Transmission Date: 20110831
  Serious: Yes (Other)
  Sender: FDA-Public Use
  Company Number: US-JNJFOC-20101209102

PATIENT
  Sex: Male
  Weight: 74.84 kg

DRUGS (14)
  1. CANASA [Concomitant]
     Indication: COLITIS
     Route: 054
  2. COLAZAL [Concomitant]
     Indication: COLITIS
     Route: 048
  3. COZAAR [Concomitant]
     Indication: BLOOD PRESSURE
     Route: 048
  4. FUROSEMIDE [Concomitant]
     Indication: BLOOD PRESSURE
     Route: 048
  5. AZATHIOPRINE [Concomitant]
     Indication: COLITIS
     Route: 048
  6. CRESTOR [Concomitant]
     Indication: BLOOD CHOLESTEROL INCREASED
     Route: 048
  7. REMICADE [Suspect]
     Indication: COLITIS ULCERATIVE
     Route: 042
  8. MINOXIDIL [Concomitant]
     Indication: BLOOD PRESSURE
     Route: 048
  9. LIBRAX [Concomitant]
     Indication: COLITIS
     Route: 048
  10. COREG [Concomitant]
     Route: 048
  11. CORTIFOAM [Concomitant]
     Indication: COLITIS
     Route: 054
  12. PRAVACHOL [Concomitant]
     Indication: BLOOD CHOLESTEROL INCREASED
     Route: 048
  13. TERAZOSIN [Concomitant]
     Indication: BLOOD PRESSURE
     Route: 048
  14. DICYCLOMINE [Concomitant]
     Indication: COLITIS
     Route: 048

REACTIONS (1)
  - BLADDER NEOPLASM [None]
